FAERS Safety Report 25364306 (Version 2)
Quarter: 2025Q2

REPORT INFORMATION
  Report Type: Spontaneous
  Country: US (occurrence: US)
  Receive Date: 20250527
  Receipt Date: 20250612
  Transmission Date: 20250716
  Serious: No
  Sender: AMGEN
  Company Number: US-AMGEN-USASP2025098530

PATIENT
  Age: 76 Year
  Sex: Female
  Weight: 47.619 kg

DRUGS (1)
  1. NEULASTA [Suspect]
     Active Substance: PEGFILGRASTIM
     Indication: Prophylaxis
     Route: 065

REACTIONS (1)
  - Product communication issue [Unknown]

NARRATIVE: CASE EVENT DATE: 20250515
